FAERS Safety Report 7464776-1 (Version None)
Quarter: 2011Q2

REPORT INFORMATION
  Report Type: 
  Country: None (occurrence: None)
  Receive Date: 20110429
  Receipt Date: 20110429
  Transmission Date: 20111010
  Serious: Yes (Other)
  Sender: FDA-Public Use
  Company Number: None

PATIENT
  Sex: Female
  Weight: 86.637 kg

DRUGS (7)
  1. BUSPIRONE HCL [Suspect]
     Indication: ANXIETY
     Dosage: 10 MG. TWICE/DAY ORAL
     Route: 048
     Dates: start: 20110328
  2. BUSPIRONE HCL [Suspect]
     Indication: ANXIETY
     Dosage: 10 MG. TWICE/DAY ORAL
     Route: 048
     Dates: start: 20110329
  3. BUSPIRONE HCL [Suspect]
     Indication: ANXIETY
     Dosage: 10 MG. TWICE/DAY ORAL
     Route: 048
     Dates: start: 20110330
  4. BUSPIRONE HCL [Suspect]
     Indication: ANXIETY
     Dosage: 10 MG. TWICE/DAY ORAL
     Route: 048
     Dates: start: 20110402
  5. BUSPIRONE HCL [Suspect]
     Indication: ANXIETY
     Dosage: 10 MG. TWICE/DAY ORAL
     Route: 048
     Dates: start: 20110403
  6. BUSPIRONE HCL [Suspect]
     Indication: ANXIETY
     Dosage: 10 MG. TWICE/DAY ORAL
     Route: 048
     Dates: start: 20110331
  7. BUSPIRONE HCL [Suspect]
     Indication: ANXIETY
     Dosage: 10 MG. TWICE/DAY ORAL
     Route: 048
     Dates: start: 20110401

REACTIONS (13)
  - ERUCTATION [None]
  - DECREASED APPETITE [None]
  - MOUTH HAEMORRHAGE [None]
  - CONDITION AGGRAVATED [None]
  - MOTION SICKNESS [None]
  - TONGUE BITING [None]
  - FEELING ABNORMAL [None]
  - ANXIETY [None]
  - AGEUSIA [None]
  - GLOSSODYNIA [None]
  - SLEEP DISORDER [None]
  - NAUSEA [None]
  - DEPRESSION [None]
